FAERS Safety Report 5512745-0 (Version None)
Quarter: 2007Q4

REPORT INFORMATION
  Report Type: 
  Country: None (occurrence: None)
  Receive Date: 20071112
  Receipt Date: 20071101
  Transmission Date: 20080405
  Serious: Yes (Other)
  Sender: FDA-Public Use
  Company Number: US-ROCHE-498377

PATIENT
  Age: 46 Year
  Sex: Male

DRUGS (4)
  1. PEGASYS [Suspect]
     Route: 065
     Dates: end: 20071001
  2. PEGASYS [Suspect]
     Route: 065
     Dates: start: 20070404
  3. RIBAVIRIN [Suspect]
     Route: 065
     Dates: start: 20070404, end: 20071001
  4. CELEXA [Concomitant]

REACTIONS (13)
  - ABDOMINAL DISTENSION [None]
  - APPETITE DISORDER [None]
  - BLOOD DISORDER [None]
  - DEPRESSION [None]
  - FATIGUE [None]
  - IRRITABILITY [None]
  - MASS [None]
  - NERVOUSNESS [None]
  - NO THERAPEUTIC RESPONSE [None]
  - PLATELET COUNT DECREASED [None]
  - SCHIZOPHRENIA [None]
  - SOMNOLENCE [None]
  - WEIGHT INCREASED [None]
